FAERS Safety Report 9838033 (Version 3)
Quarter: 2014Q2

REPORT INFORMATION
  Report Type: Spontaneous
  Country: JP (occurrence: JP)
  Receive Date: 20140123
  Receipt Date: 20140418
  Transmission Date: 20141212
  Serious: Yes (Hospitalization, Other)
  Sender: FDA-Public Use
  Company Number: JP-SANOFI-AVENTIS-2012SA084149

PATIENT
  Age: 63 Year
  Sex: Female
  Weight: 50.2 kg

DRUGS (11)
  1. ELPLAT [Suspect]
     Indication: COLON CANCER
     Route: 041
     Dates: start: 20120706, end: 20120706
  2. ELPLAT [Suspect]
     Indication: COLON CANCER
     Route: 041
     Dates: start: 20120726, end: 20120726
  3. XELODA [Suspect]
     Indication: COLON CANCER
     Route: 048
     Dates: start: 20120706, end: 20120719
  4. XELODA [Suspect]
     Indication: COLON CANCER
     Route: 048
     Dates: start: 20120726, end: 20120804
  5. FAMOTIDINE [Concomitant]
  6. PRIMPERAN [Concomitant]
  7. DOMPERIDONE [Concomitant]
  8. BUSCOPAN [Concomitant]
  9. LENDORMIN [Concomitant]
  10. ROPION [Concomitant]
  11. PYRINAZIN [Concomitant]
     Dosage: FORM: POWDER

REACTIONS (4)
  - Immune thrombocytopenic purpura [Recovered/Resolved]
  - Diarrhoea [Unknown]
  - Nausea [Unknown]
  - Vomiting [Unknown]
